FAERS Safety Report 24248482 (Version 1)
Quarter: 2024Q3

REPORT INFORMATION
  Report Type: Spontaneous
  Country: US (occurrence: None)
  Receive Date: 20240823
  Receipt Date: 20240823
  Transmission Date: 20241017
  Serious: No
  Sender: Public
  Company Number: None

PATIENT

DRUGS (2)
  1. INSULIN HUMAN [Suspect]
     Active Substance: INSULIN HUMAN
  2. NIFEDIPINE [Suspect]
     Active Substance: NIFEDIPINE

REACTIONS (5)
  - Muscular weakness [None]
  - Muscular weakness [None]
  - Dysarthria [None]
  - Accidental overdose [None]
  - Product communication issue [None]
